FAERS Safety Report 24985488 (Version 1)
Quarter: 2025Q1

REPORT INFORMATION
  Report Type: Spontaneous
  Country: US (occurrence: None)
  Receive Date: 20250217
  Receipt Date: 20250217
  Transmission Date: 20250408
  Serious: No
  Sender: FDA-CTU
  Company Number: None

PATIENT

DRUGS (1)
  1. DILTIAZEM [Suspect]
     Active Substance: DILTIAZEM

REACTIONS (3)
  - Wheezing [None]
  - Dyspnoea [None]
  - Insomnia [None]
